FAERS Safety Report 5937229-7 (Version None)
Quarter: 2008Q4

REPORT INFORMATION
  Report Type: 
  Country: None (occurrence: None)
  Receive Date: 20081031
  Receipt Date: 20081020
  Transmission Date: 20090506
  Serious: Yes (Other)
  Sender: FDA-Public Use
  Company Number: CH-AMGEN-UK314292

PATIENT
  Sex: Female
  Weight: 42 kg

DRUGS (2)
  1. NEULASTA [Suspect]
     Indication: AGRANULOCYTOSIS
     Route: 065
     Dates: start: 20081017
  2. KEPPRA [Concomitant]
     Route: 065
     Dates: start: 20080101

REACTIONS (4)
  - DECREASED APPETITE [None]
  - HEADACHE [None]
  - NAUSEA [None]
  - VOMITING [None]
